FAERS Safety Report 5045702-1 (Version None)
Quarter: 2006Q3

REPORT INFORMATION
  Report Type: 
  Country: None (occurrence: None)
  Receive Date: 20060710
  Receipt Date: 20060629
  Transmission Date: 20061208
  Serious: Yes (Other)
  Sender: FDA-Public Use
  Company Number: US-JNJFOC-20060606709

PATIENT
  Sex: Male

DRUGS (10)
  1. REMICADE [Suspect]
     Indication: RHEUMATOID ARTHRITIS
     Route: 042
  2. ATENOLOL [Concomitant]
  3. CALCIUM GLUCONATE [Concomitant]
     Dosage: 500 MG 3 TABLETS DAILY
  4. ENBREL [Concomitant]
  5. MULTI-VITAMIN [Concomitant]
  6. TUMS [Concomitant]
  7. VICODIN [Concomitant]
  8. FORTEO [Concomitant]
  9. HUMIRA [Concomitant]
  10. ULTRACET [Concomitant]

REACTIONS (1)
  - BASAL CELL CARCINOMA [None]
